FAERS Safety Report 7452958-4 (Version None)
Quarter: 2011Q2

REPORT INFORMATION
  Report Type: 
  Country: None (occurrence: None)
  Receive Date: 20110502
  Receipt Date: 20110426
  Transmission Date: 20111010
  Serious: Yes (Death)
  Sender: FDA-Public Use
  Company Number: US-ASTRAZENECA-2011SE16211

PATIENT
  Age: 87 Year
  Sex: Female

DRUGS (10)
  1. SEROQUEL [Suspect]
     Route: 048
     Dates: start: 20110217
  2. SIMVASTATIN [Concomitant]
  3. SEROQUEL [Suspect]
     Route: 048
  4. THYROID TAB [Concomitant]
  5. POTASSIUM [Concomitant]
  6. SEROQUEL [Suspect]
     Indication: INSOMNIA
     Route: 048
     Dates: start: 20110210
  7. SEROQUEL [Suspect]
     Indication: ANXIETY
     Route: 048
     Dates: start: 20110210
  8. SEROQUEL [Suspect]
     Route: 048
     Dates: start: 20110217
  9. SEROQUEL [Suspect]
     Route: 048
  10. DETROL [Concomitant]

REACTIONS (2)
  - DEATH [None]
  - OFF LABEL USE [None]
